FAERS Safety Report 4341198-3 (Version None)
Quarter: 2004Q1

REPORT INFORMATION
  Report Type: 
  Country: None (occurrence: None)
  Receive Date: 20040329
  Receipt Date: 20031209
  Transmission Date: 20041129
  Serious: No
  Sender: FDA-Public Use
  Company Number: 03P-163-0244244-00

PATIENT
  Age: 78 Year
  Sex: Female
  Weight: 52.1637 kg

DRUGS (10)
  1. HUMIRA [Suspect]
     Indication: RHEUMATOID ARTHRITIS
     Dosage: 40 MG, 1 IN 2 WK, SUBCUTANEOUS
     Route: 058
     Dates: start: 20030901
  2. CITALOPRAM HYDROBROMIDE [Concomitant]
  3. CALCIUM CARBONATE [Concomitant]
  4. SPIRONOLACTONE [Concomitant]
  5. MORPHINE SULFATE [Concomitant]
  6. GABAPENTIN [Concomitant]
  7. FUROSEMIDE [Concomitant]
  8. CYPROHEPTADINE HYDROCHLORIDE [Concomitant]
  9. TRAZODONE HCL [Concomitant]
  10. ZOLPIDEM TARTRATE [Concomitant]

REACTIONS (2)
  - DRUG INEFFECTIVE [None]
  - INJECTION SITE BURNING [None]
